FAERS Safety Report 6668664-X (Version None)
Quarter: 2010Q2

REPORT INFORMATION
  Report Type: 
  Country: None (occurrence: None)
  Receive Date: 20100406
  Receipt Date: 20100330
  Transmission Date: 20101027
  Serious: Yes (Hospitalization)
  Sender: FDA-Public Use
  Company Number: FR-BAXTER-2010BH000258

PATIENT
  Age: 59 Year
  Sex: Male

DRUGS (2)
  1. GAMMAGARD S/D [Suspect]
     Indication: HYPOGLOBULINAEMIA
     Route: 042
     Dates: start: 20091223, end: 20091223
  2. GAMMAGARD S/D [Suspect]
     Route: 042

REACTIONS (5)
  - CHILLS [None]
  - DYSPNOEA [None]
  - HYPERTHERMIA [None]
  - INCORRECT DRUG ADMINISTRATION DURATION [None]
  - TACHYCARDIA [None]
